FAERS Safety Report 5056821-8 (Version None)
Quarter: 2006Q2

REPORT INFORMATION
  Report Type: 
  Country: None (occurrence: None)
  Receive Date: 20060619
  Receipt Date: 20050527
  Transmission Date: 20061013
  Serious: Yes (Disabling)
  Sender: FDA-Public Use
  Company Number: WAES 0505USA03366

PATIENT
  Age: 59 Year
  Sex: Male
  Weight: 72.5755 kg

DRUGS (2)
  1. COZAAR [Suspect]
     Dosage: PO
     Route: 048
     Dates: start: 19990101, end: 20050301
  2. ATORVASTATIN CALCIUM [Concomitant]

REACTIONS (4)
  - ARTHRALGIA [None]
  - BACK PAIN [None]
  - FATIGUE [None]
  - PAIN IN EXTREMITY [None]
